FAERS Safety Report 23543011 (Version 2)
Quarter: 2024Q1

REPORT INFORMATION
  Report Type: Spontaneous
  Country: IR (occurrence: IR)
  Receive Date: 20240220
  Receipt Date: 20240228
  Transmission Date: 20240409
  Serious: Yes (Death)
  Sender: FDA-Public Use
  Company Number: IR-PFIZER INC-PV202400021475

PATIENT
  Age: 47 Year
  Sex: Male

DRUGS (1)
  1. AVIBACTAM SODIUM\CEFTAZIDIME [Suspect]
     Active Substance: AVIBACTAM SODIUM\CEFTAZIDIME
     Indication: Pneumonia
     Route: 065

REACTIONS (1)
  - Blastic plasmacytoid dendritic cell neoplasia [Fatal]
